FAERS Safety Report 6863926-5 (Version None)
Quarter: 2010Q3

REPORT INFORMATION
  Report Type: 
  Country: None (occurrence: None)
  Receive Date: 20100721
  Receipt Date: 20100709
  Transmission Date: 20110219
  Serious: Yes (Hospitalization)
  Sender: FDA-Public Use
  Company Number: US-WATSON-2010-09438

PATIENT
  Sex: Male

DRUGS (5)
  1. PREDNISONE TAB [Suspect]
     Indication: ASTHMA
     Dosage: 60 MG, DAILY X 2 DAYS, THEN 30MG DAILY, THEN UNKNOWN TAPERED SCHEDULE
     Dates: start: 20100708
  2. PREDNISONE TAB [Suspect]
     Dosage: 60 MG, DAILY X 5 DAYS
     Route: 048
     Dates: start: 20100701, end: 20100705
  3. ALBUTEROL [Suspect]
     Indication: ASTHMA
     Dosage: 2 -3 X DAY WITH NEBULIZER
     Route: 065
     Dates: start: 20100609
  4. DEPAKOTE ER [Concomitant]
     Indication: CONVULSION
  5. COENZYME Q10                       /03913201/ [Concomitant]
     Indication: MITOCHONDRIAL CYTOPATHY

REACTIONS (5)
  - ASTHMA [None]
  - DRUG INEFFECTIVE [None]
  - DYSPNOEA [None]
  - HEART RATE INCREASED [None]
  - SUPRAVENTRICULAR TACHYCARDIA [None]
